FAERS Safety Report 6058661-X (Version None)
Quarter: 2009Q1

REPORT INFORMATION
  Report Type: 
  Country: None (occurrence: None)
  Receive Date: 20090130
  Receipt Date: 20090120
  Transmission Date: 20090719
  Serious: Yes (Hospitalization)
  Sender: FDA-Public Use
  Company Number: FR-PFIZER INC-2008159777

PATIENT

DRUGS (9)
  1. DALACIN [Suspect]
     Indication: STAPHYLOCOCCAL INFECTION
     Dosage: UNK
     Route: 042
  2. DALACIN [Suspect]
     Indication: DEVICE RELATED INFECTION
  3. DALACIN [Suspect]
     Indication: STREPTOCOCCAL INFECTION
     Dosage: 600 MG, 3X/DAY
     Route: 048
     Dates: start: 20081120, end: 20081220
  4. RIFADIN [Suspect]
     Indication: DEVICE RELATED INFECTION
     Dosage: 600 MG, 2X/DAY
     Route: 048
     Dates: start: 20081128, end: 20081216
  5. ZOLMITRIPTAN [Concomitant]
     Indication: MIGRAINE
     Dosage: UNK
     Route: 048
  6. PREVISCAN [Concomitant]
     Indication: THROMBOSIS PROPHYLAXIS
     Dosage: UNK
     Route: 048
  7. ACETAMINOPHEN [Concomitant]
     Indication: PYREXIA
     Route: 048
  8. ACETAMINOPHEN [Concomitant]
     Indication: PAIN
  9. TRAMADOL HYDROCHLORIDE [Concomitant]
     Indication: PAIN
     Dosage: UNK
     Route: 048

REACTIONS (1)
  - PYREXIA [None]
